FAERS Safety Report 22915284 (Version 2)
Quarter: 2025Q2

REPORT INFORMATION
  Report Type: Spontaneous
  Country: CN (occurrence: CN)
  Receive Date: 20230907
  Receipt Date: 20250527
  Transmission Date: 20250716
  Serious: Yes (Hospitalization, Other)
  Sender: AUROBINDO
  Company Number: CN-MLMSERVICE-20230821-4487702-1

PATIENT
  Age: 5 Year
  Sex: Male
  Weight: 20 kg

DRUGS (7)
  1. PANTOPRAZOLE [Interacting]
     Active Substance: PANTOPRAZOLE
     Indication: Gastrointestinal disorder prophylaxis
     Dosage: 20 MILLIGRAM, ONCE A DAY
     Route: 065
     Dates: start: 2020
  2. METHOTREXATE [Interacting]
     Active Substance: METHOTREXATE
     Indication: Acute lymphocytic leukaemia
     Route: 065
     Dates: start: 20200530
  3. METHOTREXATE [Interacting]
     Active Substance: METHOTREXATE
     Route: 065
     Dates: start: 20200515
  4. GLUTATHIONE [Concomitant]
     Active Substance: GLUTATHIONE
     Indication: Drug-induced liver injury
     Route: 048
     Dates: start: 20200522
  5. LEVOLEUCOVORIN CALCIUM [Concomitant]
     Active Substance: LEVOLEUCOVORIN CALCIUM
     Indication: Salvage therapy
     Dosage: 6 MILLIGRAM, FOUR TIMES/DAY(WAS ADMINISTERED 42 H AFTER THE START OF CHEMOTHERAPY)
     Route: 065
     Dates: start: 202005, end: 202005
  6. LEVOLEUCOVORIN CALCIUM [Concomitant]
     Active Substance: LEVOLEUCOVORIN CALCIUM
     Dosage: 6 MILLIGRAM, FOUR TIMES/DAY (WAS ADMINISTERED 42 H AFTER THE START OF CHEMOTHERAPY)
     Route: 065
     Dates: start: 202005, end: 2020
  7. MAGNESIUM ISOGLYCYRRHIZINATE [Concomitant]
     Active Substance: MAGNESIUM ISOGLYCYRRHIZINATE
     Indication: Drug-induced liver injury
     Dosage: 1000 MILLIGRAM, ONCE A DAY
     Route: 065
     Dates: start: 20200518

REACTIONS (9)
  - Urethral disorder [Recovered/Resolved]
  - Drug-induced liver injury [Recovering/Resolving]
  - Erythema [Recovered/Resolved]
  - Oral pain [Recovered/Resolved]
  - Anal erosion [Recovered/Resolved]
  - Chemotherapeutic drug level increased [Recovered/Resolved]
  - Oral mucosa erosion [Recovered/Resolved]
  - Pruritus [Recovered/Resolved]
  - Drug interaction [Recovered/Resolved]

NARRATIVE: CASE EVENT DATE: 20200101
